FAERS Safety Report 15601719 (Version 2)
Quarter: 2019Q1

REPORT INFORMATION
  Report Type: Spontaneous
  Country: AU (occurrence: AU)
  Receive Date: 20181109
  Receipt Date: 20190218
  Transmission Date: 20190417
  Serious: Yes (Other)
  Sender: FDA-Public Use
  Company Number: AU-MYLANLABS-2018M1083638

PATIENT
  Age: 51 Year
  Sex: Female

DRUGS (1)
  1. EPIPEN [Suspect]
     Active Substance: EPINEPHRINE
     Indication: ANAPHYLACTIC REACTION
     Dosage: UNK
     Dates: start: 20181101, end: 20181101

REACTIONS (2)
  - Needle issue [Unknown]
  - Device failure [Unknown]

NARRATIVE: CASE EVENT DATE: 20181101
